FAERS Safety Report 9292181 (Version 1)
Quarter: 2013Q2

REPORT INFORMATION
  Report Type: Report from Study
  Country: CA (occurrence: CA)
  Receive Date: 20130516
  Receipt Date: 20130516
  Transmission Date: 20140414
  Serious: Yes (Other)
  Sender: FDA-Public Use
  Company Number: CA-JNJFOC-20130504394

PATIENT
  Sex: Male
  Weight: 63 kg

DRUGS (2)
  1. REMICADE [Suspect]
     Indication: CROHN^S DISEASE
     Dosage: 6 VIALS/600 MG
     Route: 042
     Dates: start: 2003
  2. REMICADE [Suspect]
     Indication: CROHN^S DISEASE
     Dosage: 6 VIALS/600 MG
     Route: 042

REACTIONS (2)
  - Weight increased [Unknown]
  - Depression [Unknown]
